FAERS Safety Report 5792065-X (Version None)
Quarter: 2008Q2

REPORT INFORMATION
  Report Type: 
  Country: None (occurrence: None)
  Receive Date: 20080626
  Receipt Date: 20080422
  Transmission Date: 20081010
  Serious: No
  Sender: FDA-Public Use
  Company Number: US-ASTRAZENECA-2008UW08123

PATIENT
  Age: 67 Year
  Sex: Female

DRUGS (8)
  1. PULMICORT-100 [Suspect]
     Indication: ASTHMA
     Route: 055
     Dates: start: 20070101
  2. AVALIDE [Concomitant]
  3. OMEPRAZOLE [Concomitant]
  4. PROZAC [Concomitant]
  5. TRAZADINE [Concomitant]
  6. LUNESTA [Concomitant]
  7. AMBIEN [Concomitant]
  8. NYQUIL [Concomitant]

REACTIONS (4)
  - COUGH [None]
  - DYSPNOEA [None]
  - HEART RATE INCREASED [None]
  - INCREASED APPETITE [None]
